FAERS Safety Report 6907778-3 (Version None)
Quarter: 2010Q3

REPORT INFORMATION
  Report Type: 
  Country: None (occurrence: None)
  Receive Date: 20100805
  Receipt Date: 20100722
  Transmission Date: 20110219
  Serious: Yes (Death)
  Sender: FDA-Public Use
  Company Number: GB-RANBAXY-2010RR-36641

PATIENT
  Age: 76 Year
  Sex: Female
  Weight: 92 kg

DRUGS (16)
  1. METFORMIN HCL [Suspect]
     Dosage: UNK
     Route: 048
     Dates: start: 20100209, end: 20100209
  2. QUININE [Suspect]
     Dosage: UNK
     Route: 048
     Dates: start: 20100209, end: 20100210
  3. ADCAL-D3 [Concomitant]
  4. ALENDRONIC ACID [Concomitant]
  5. AMLODIPINE [Concomitant]
  6. ASPIRIN [Concomitant]
  7. ATORVASTATIN [Concomitant]
  8. BISOPROLOL FUMARATE [Concomitant]
  9. FERROUS SULFATE TAB [Concomitant]
  10. GLYCERYL TRINITRATE [Concomitant]
  11. IBUPROFEN [Concomitant]
  12. ISOSORBIDE MONONITRATE [Concomitant]
  13. LEVOTHYROXINE SODIUM [Concomitant]
  14. PRILOSEC [Concomitant]
  15. PARACETAMOL [Concomitant]
  16. TEMAZEPAM [Suspect]

REACTIONS (2)
  - DEATH [None]
  - DRUG ADMINISTRATION ERROR [None]
